FAERS Safety Report 8531824-7 (Version None)
Quarter: 2012Q3

REPORT INFORMATION
  Report Type: 
  Country: None (occurrence: None)
  Receive Date: 20120723
  Receipt Date: 20120709
  Transmission Date: 20120928
  Serious: No
  Sender: FDA-Public Use
  Company Number: US-ASTRAZENECA-2012SE47078

PATIENT
  Sex: Female

DRUGS (3)
  1. CRESTOR [Suspect]
     Route: 048
  2. CRESTOR [Suspect]
     Route: 048
  3. CRESTOR [Suspect]
     Route: 048

REACTIONS (6)
  - HEADACHE [None]
  - SINUSITIS [None]
  - OFF LABEL USE [None]
  - ADVERSE EVENT [None]
  - INSOMNIA [None]
  - DRUG INTOLERANCE [None]
